FAERS Safety Report 9331417 (Version 1)
Quarter: 2013Q2

REPORT INFORMATION
  Report Type: Spontaneous
  Country: IN (occurrence: IN)
  Receive Date: 20130605
  Receipt Date: 20130605
  Transmission Date: 20140414
  Serious: Yes (Life-Threatening)
  Sender: FDA-Public Use
  Company Number: IN-WATSON-2013-09628

PATIENT
  Age: 25 Year
  Sex: Male

DRUGS (1)
  1. CHLOROQUINE (UNKNOWN) [Suspect]
     Indication: PYREXIA
     Dosage: 1200 MG, SINGLE
     Route: 048

REACTIONS (1)
  - Methaemoglobinaemia [Recovering/Resolving]
